FAERS Safety Report 7822772-6 (Version None)
Quarter: 2011Q4

REPORT INFORMATION
  Report Type: 
  Country: None (occurrence: None)
  Receive Date: 20111018
  Receipt Date: 20111004
  Transmission Date: 20120403
  Serious: Yes (Hospitalization)
  Sender: FDA-Public Use
  Company Number: US-ELI_LILLY_AND_COMPANY-US201104002414

PATIENT
  Sex: Female

DRUGS (7)
  1. FORTEO [Suspect]
     Indication: OSTEOPOROSIS
     Dosage: 20 UG, QD
     Route: 058
     Dates: start: 20110226
  2. FORTEO [Suspect]
     Dosage: 20 UG, QD
     Route: 058
  3. COUMADIN [Concomitant]
  4. METOPROLOL TARTRATE [Concomitant]
  5. FORTEO [Suspect]
     Dosage: 20 UG, QD
     Route: 058
     Dates: start: 20110226
  6. FORTEO [Suspect]
     Dosage: 20 UG, QD
     Route: 058
  7. FORTEO [Suspect]
     Dosage: 20 UG, QD
     Route: 058

REACTIONS (10)
  - DYSPNOEA [None]
  - INJECTION SITE ERYTHEMA [None]
  - CARDIAC MURMUR [None]
  - VARICOSE VEIN [None]
  - HYPERHIDROSIS [None]
  - DECREASED ACTIVITY [None]
  - CATHETERISATION CARDIAC [None]
  - DEVICE DISLOCATION [None]
  - DIZZINESS [None]
  - MUSCLE SPASMS [None]
